FAERS Safety Report 6824987-2 (Version None)
Quarter: 2010Q3

REPORT INFORMATION
  Report Type: 
  Country: None (occurrence: None)
  Receive Date: 20100708
  Receipt Date: 20070102
  Transmission Date: 20110219
  Serious: No
  Sender: FDA-Public Use
  Company Number: US-PFIZER INC-2007002112

PATIENT
  Sex: Female
  Weight: 72.574 kg

DRUGS (6)
  1. CHANTIX [Suspect]
     Indication: SMOKING CESSATION THERAPY
     Dates: start: 20061223, end: 20070102
  2. PROZAC [Concomitant]
  3. VYTORIN [Concomitant]
  4. NIASPAN [Concomitant]
  5. ACETYLSALICYLIC ACID [Concomitant]
  6. SIMVASTATIN [Concomitant]

REACTIONS (3)
  - ABDOMINAL PAIN UPPER [None]
  - MALAISE [None]
  - NAUSEA [None]
